FAERS Safety Report 14312749 (Version 1)
Quarter: 2017Q4

REPORT INFORMATION
  Report Type: Report from Study
  Country: JP (occurrence: JP)
  Receive Date: 20171221
  Receipt Date: 20171221
  Transmission Date: 20180321
  Serious: Yes (Life-Threatening, Other)
  Sender: FDA-Public Use
  Company Number: PHHY2016JP183201

PATIENT
  Age: 66 Year
  Sex: Male
  Weight: 89 kg

DRUGS (21)
  1. ARGATROBAN. [Suspect]
     Active Substance: ARGATROBAN
     Dosage: 7.5 UG/KG, UNK  (1 MIN)
     Route: 041
     Dates: start: 20151015, end: 20151015
  2. ARGATROBAN. [Suspect]
     Active Substance: ARGATROBAN
     Dosage: 1.9 UG/KG, UNK  (1 MIN)
     Route: 041
     Dates: start: 20151015, end: 20151015
  3. HEPARIN SODIUM. [Concomitant]
     Active Substance: HEPARIN SODIUM
     Indication: MYOCARDIAL INFARCTION
     Dosage: 1500 IU, QD
     Route: 041
     Dates: start: 20151002, end: 20151011
  4. SPIRONOLACTONE. [Concomitant]
     Active Substance: SPIRONOLACTONE
     Indication: PRODUCT USED FOR UNKNOWN INDICATION
     Dosage: 50 MG, QD
     Route: 048
     Dates: start: 20151022
  5. FUROSEMIDE. [Concomitant]
     Active Substance: FUROSEMIDE
     Indication: PRODUCT USED FOR UNKNOWN INDICATION
     Dosage: 20 MG, 1X/DAY
     Route: 048
     Dates: start: 20151027
  6. ARGATROBAN. [Suspect]
     Active Substance: ARGATROBAN
     Indication: HEPARIN-INDUCED THROMBOCYTOPENIA
     Dosage: 0.65 UG/KG, UNK (1 MIN)
     Route: 041
     Dates: start: 20151013, end: 20151015
  7. IMIDAPRIL HYDROCHLORIDE [Concomitant]
     Active Substance: IMIDAPRIL HYDROCHLORIDE
     Indication: PRODUCT USED FOR UNKNOWN INDICATION
     Dosage: 1.25 MG, QD
     Route: 048
     Dates: start: 20151022
  8. CLOPIDOGREL SULFATE [Concomitant]
     Active Substance: CLOPIDOGREL BISULFATE
     Indication: PRODUCT USED FOR UNKNOWN INDICATION
     Dosage: UNK
     Route: 048
     Dates: start: 20151002
  9. ARGATROBAN. [Suspect]
     Active Substance: ARGATROBAN
     Dosage: 0.1 MG/KG, UNK (1 MIN) SEVERAL TIMES
     Route: 040
     Dates: start: 20151015, end: 20151015
  10. BISOPROLOL [Concomitant]
     Active Substance: BISOPROLOL
     Indication: PRODUCT USED FOR UNKNOWN INDICATION
     Dosage: 0.625 MG, 1X/DAY
     Route: 048
     Dates: start: 20151012
  11. ARGATROBAN. [Suspect]
     Active Substance: ARGATROBAN
     Dosage: 5.6 UG/KG, UNK  (1 MIN)
     Route: 041
     Dates: start: 20151015, end: 20151015
  12. ARGATROBAN. [Suspect]
     Active Substance: ARGATROBAN
     Dosage: 2.8 UG/KG, UNK  (1 MIN)
     Route: 041
     Dates: start: 20151015, end: 20151015
  13. ARGATROBAN. [Suspect]
     Active Substance: ARGATROBAN
     Dosage: 1 UG/KG, UNK (1 MIN)
     Route: 041
     Dates: start: 20151015, end: 20151015
  14. ASPIRIN. [Concomitant]
     Active Substance: ASPIRIN
     Dosage: 100 MG, QD
     Route: 048
     Dates: start: 20151022
  15. ARGATROBAN. [Suspect]
     Active Substance: ARGATROBAN
     Dosage: 2.8 UG/KG, UNK  (1 MIN)
     Route: 041
     Dates: start: 20151015, end: 20151015
  16. WARFARIN POTASSIUM [Concomitant]
     Active Substance: WARFARIN POTASSIUM
     Indication: PRODUCT USED FOR UNKNOWN INDICATION
     Dosage: 5 MG, 1X/DAY
     Route: 048
     Dates: start: 20151022
  17. FUTHAN [Suspect]
     Active Substance: NAFAMOSTAT MESYLATE
     Indication: HEPARIN-INDUCED THROMBOCYTOPENIA
     Dosage: 200 MG/H, UNK (TEMPORAL ADMINISTRATION WITH CARDIOPULMONARY BYPASS DURING THE SURGERY)
     Route: 041
     Dates: start: 20151015, end: 20151015
  18. URSO [Concomitant]
     Active Substance: URSODIOL
     Indication: PRODUCT USED FOR UNKNOWN INDICATION
     Dosage: 300 MG, 1X/DAY
     Route: 048
     Dates: start: 20151021, end: 20151029
  19. LANSOPRAZOLE. [Concomitant]
     Active Substance: LANSOPRAZOLE
     Indication: PRODUCT USED FOR UNKNOWN INDICATION
     Dosage: 15 MG, 1X/DAY
     Route: 048
     Dates: start: 20151021
  20. ASPIRIN. [Concomitant]
     Active Substance: ASPIRIN
     Indication: PRODUCT USED FOR UNKNOWN INDICATION
     Dosage: UNK
     Route: 048
     Dates: start: 20151002
  21. CRESTOR [Concomitant]
     Active Substance: ROSUVASTATIN CALCIUM
     Indication: PRODUCT USED FOR UNKNOWN INDICATION
     Dosage: 2.5 MG, 1X/DAY
     Route: 048
     Dates: start: 20151022

REACTIONS (5)
  - Deep vein thrombosis [Unknown]
  - Pneumonia [Unknown]
  - Jaundice [Recovering/Resolving]
  - Post procedural haemorrhage [Recovering/Resolving]
  - Liver disorder [Recovering/Resolving]

NARRATIVE: CASE EVENT DATE: 20151014
